FAERS Safety Report 8045775 (Version 6)
Quarter: 2013Q2

REPORT INFORMATION
  Report Type: Report from Study
  Country: US (occurrence: US)
  Receive Date: 20110720
  Receipt Date: 20130419
  Transmission Date: 20140414
  Serious: Yes (Hospitalization, Other)
  Sender: FDA-Public Use
  Company Number: PHHY2011US50858

PATIENT
  Age: 5 Year
  Sex: Male

DRUGS (8)
  1. AFINITOR [Suspect]
     Indication: TUBEROUS SCLEROSIS
     Dosage: 5 MG, QD
     Route: 048
     Dates: start: 201102, end: 20110515
  2. AFINITOR [Suspect]
     Dosage: 2.5 MG, DAILY
     Route: 048
     Dates: start: 20110516, end: 20110516
  3. AFINITOR [Suspect]
     Dosage: 5 MG, DAILY
     Route: 048
     Dates: start: 20110517
  4. AFINITOR [Suspect]
     Dosage: UNK UKN, UNK
     Dates: start: 20111027, end: 20111130
  5. AFINITOR [Suspect]
     Dosage: UNK UKN, UNK
     Dates: start: 201302
  6. RISPERDAL [Concomitant]
     Dosage: 1-2  DF, QHS
  7. ZYRTEC [Concomitant]
     Dosage: UNK UKN, UNK
     Route: 065
  8. CLARITIN [Concomitant]
     Indication: HYPERSENSITIVITY
     Dosage: 10 MG, QD
     Route: 048

REACTIONS (13)
  - Pneumonia [Recovered/Resolved]
  - Sinusitis [Recovered/Resolved]
  - Pyrexia [Recovered/Resolved]
  - Asthma [Recovered/Resolved]
  - Respiratory tract congestion [Not Recovered/Not Resolved]
  - Cough [Not Recovered/Not Resolved]
  - Malaise [Unknown]
  - Autism [Recovered/Resolved]
  - Convulsion [Recovered/Resolved]
  - Sputum discoloured [Unknown]
  - Abnormal behaviour [Unknown]
  - Aggression [Unknown]
  - Upper respiratory tract infection [Recovered/Resolved]
